FAERS Safety Report 4711129-2 (Version None)
Quarter: 2005Q3

REPORT INFORMATION
  Report Type: 
  Country: None (occurrence: None)
  Receive Date: 20050708
  Receipt Date: 20050628
  Transmission Date: 20060218
  Serious: Yes (Other)
  Sender: FDA-Public Use
  Company Number: FRWYE614525APR05

PATIENT
  Age: 49 Year
  Sex: Female

DRUGS (2)
  1. EFFEXOR XR [Suspect]
     Indication: DEPRESSION
     Dosage: 7 CAPSULE 1X PER 1 DAY; 5 CAPSULE 1X PER 1 DAY
     Route: 048
     Dates: start: 20041130, end: 20050317
  2. EFFEXOR XR [Suspect]
     Indication: DEPRESSION
     Dosage: 7 CAPSULE 1X PER 1 DAY; 5 CAPSULE 1X PER 1 DAY
     Route: 048
     Dates: start: 20050318

REACTIONS (2)
  - ACUTE PULMONARY OEDEMA [None]
  - HYPERTENSION [None]
